FAERS Safety Report 4307356-9 (Version None)
Quarter: 2004Q1

REPORT INFORMATION
  Report Type: 
  Country: None (occurrence: None)
  Receive Date: 20040226
  Receipt Date: 20040212
  Transmission Date: 20041129
  Serious: Yes (Hospitalization, Other)
  Sender: FDA-Public Use
  Company Number: 2004010080

PATIENT
  Age: 82 Year
  Sex: Male
  Weight: 61.2356 kg

DRUGS (8)
  1. TIKOSYN [Suspect]
     Indication: ATRIAL FIBRILLATION
     Dosage: 1000 MCG (BID), ORAL
     Route: 048
  2. WARFARIN SODIUM [Suspect]
     Indication: ILL-DEFINED DISORDER
     Dates: end: 20040211
  3. FUROSEMIDE [Concomitant]
  4. ACETYLSALICYLIC ACID (ACTYLSALICYLIC ACID) [Concomitant]
  5. SPIRONOLACTONE [Concomitant]
  6. ROFECOXIB [Concomitant]
  7. GUAIFENESIN (GUAIFENESIN) [Concomitant]
  8. METOLAZONE [Concomitant]

REACTIONS (6)
  - COMA [None]
  - FALL [None]
  - INTERNATIONAL NORMALISED RATIO INCREASED [None]
  - MUSCLE TWITCHING [None]
  - OXYGEN SATURATION DECREASED [None]
  - PROTHROMBIN TIME PROLONGED [None]
